FAERS Safety Report 5941354-4 (Version None)
Quarter: 2008Q4

REPORT INFORMATION
  Report Type: 
  Country: None (occurrence: None)
  Receive Date: 20081103
  Receipt Date: 20080917
  Transmission Date: 20090506
  Serious: Yes (Hospitalization, Other)
  Sender: FDA-Public Use
  Company Number: 003#3#2008-00155

PATIENT
  Age: 81 Year
  Sex: Male

DRUGS (14)
  1. ISOSORBIDE MONONITRATE [Suspect]
  2. AMLODIPINE [Suspect]
  3. ATENOLOL [Suspect]
  4. LISINOPRIL [Suspect]
  5. OLMESARTAN MEDOXOMIL [Suspect]
     Dosage: ORAL
     Route: 048
  6. OMEPRAZOLE [Suspect]
     Dosage: 40 MG;
  7. ACETYLSALICYLIC ACID SRT [Concomitant]
  8. ATORVASTATIN CALCIUM [Concomitant]
  9. OMEPRAZOLE [Concomitant]
  10. QUININE (QUININE) [Concomitant]
  11. ALMLODIPINE (AMLODIPINE) [Concomitant]
  12. ATENOLOL [Concomitant]
  13. LISINOPRIL [Concomitant]
  14. OLMESARTAN MEDOXOMIL [Concomitant]

REACTIONS (19)
  - ATRIAL FLUTTER [None]
  - BALANCE DISORDER [None]
  - BLOOD PHOSPHORUS DECREASED [None]
  - BRADYCARDIA [None]
  - DIZZINESS [None]
  - FALL [None]
  - HEART RATE IRREGULAR [None]
  - HYPOCALCAEMIA [None]
  - HYPOKALAEMIA [None]
  - HYPOMAGNESAEMIA [None]
  - HYPOTENSION [None]
  - MUSCLE SPASMS [None]
  - NAUSEA [None]
  - PARAESTHESIA [None]
  - POLYURIA [None]
  - TETANY [None]
  - URINARY INCONTINENCE [None]
  - URINARY TRACT INFECTION [None]
  - VOMITING [None]
